FAERS Safety Report 6208528-9 (Version None)
Quarter: 2009Q2

REPORT INFORMATION
  Report Type: 
  Country: None (occurrence: None)
  Receive Date: 20090522
  Receipt Date: 20090226
  Transmission Date: 20091009
  Serious: No
  Sender: FDA-Public Use
  Company Number: 8043633

PATIENT
  Age: 57 Year
  Sex: Female
  Weight: 102.2 kg

DRUGS (16)
  1. CIMZIA [Suspect]
     Indication: CROHN'S DISEASE
     Dosage: 400 MG SC
     Route: 058
     Dates: start: 20090127
  2. EFFEXOR XR [Suspect]
     Indication: DEPRESSION
     Dosage: 150 MG /D PO
     Route: 048
  3. LANTUS [Concomitant]
  4. METFORMIN HYDROCHLORIDE [Concomitant]
  5. HUMALOG [Concomitant]
  6. GLIPIZIDE [Concomitant]
  7. CLONIDINE [Concomitant]
  8. NORVASC [Concomitant]
  9. LISINOPRIL [Concomitant]
  10. NORMODYNE [Concomitant]
  11. ZOLPIDEM TARTRATE [Concomitant]
  12. ASACOL [Concomitant]
  13. LORAZEPAM [Concomitant]
  14. PREDNISONE [Concomitant]
  15. APAP TAB [Concomitant]
  16. IMURAN [Concomitant]

REACTIONS (3)
  - DECREASED APPETITE [None]
  - NAUSEA [None]
  - PYREXIA [None]
